FAERS Safety Report 6685141-0 (Version None)
Quarter: 2010Q2

REPORT INFORMATION
  Report Type: 
  Country: None (occurrence: None)
  Receive Date: 20100416
  Receipt Date: 20100401
  Transmission Date: 20101027
  Serious: Yes (Other)
  Sender: FDA-Public Use
  Company Number: GB-PFIZER INC-2010041647

PATIENT
  Age: 44 Year
  Sex: Female

DRUGS (5)
  1. GABAPENTIN [Suspect]
  2. PHENOBARBITAL TAB [Suspect]
  3. VALPROATE SODIUM/VALPROIC ACID [Suspect]
  4. TOPIRAMATE [Suspect]
  5. CLONAZEPAM [Suspect]

REACTIONS (2)
  - MEMORY IMPAIRMENT [None]
  - RESTLESSNESS [None]
